FAERS Safety Report 14964088 (Version 2)
Quarter: 2018Q2

REPORT INFORMATION
  Report Type: Spontaneous
  Country: CN (occurrence: CN)
  Receive Date: 20180601
  Receipt Date: 20180601
  Transmission Date: 20180711
  Serious: Yes (Other)
  Sender: FDA-Public Use
  Company Number: PHHY2017CN203599

PATIENT
  Sex: Female

DRUGS (11)
  1. LEVOFLOXACIN. [Concomitant]
     Active Substance: LEVOFLOXACIN
     Indication: PREOPERATIVE CARE
     Dosage: UNK UNK, Q12H
     Route: 047
  2. PRANOPROFEN [Concomitant]
     Active Substance: PRANOPROFEN
     Indication: POSTOPERATIVE CARE
  3. TOBRADEX [Suspect]
     Active Substance: DEXAMETHASONE\TOBRAMYCIN
     Indication: POSTOPERATIVE CARE
     Dosage: UNK UNK, Q4H
     Route: 047
  4. BSS [Suspect]
     Active Substance: CALCIUM CHLORIDE\MAGNESIUM CHLORIDE\POTASSIUM CHLORIDE\SODIUM ACETATE\SODIUM CHLORIDE\SODIUM CITRATE
     Indication: PRODUCT USED FOR UNKNOWN INDICATION
     Dosage: UNK
     Route: 031
     Dates: start: 20170614, end: 20170614
  5. TOBRADEX [Suspect]
     Active Substance: DEXAMETHASONE\TOBRAMYCIN
     Indication: POSTOPERATIVE CARE
     Dosage: UNK UNK, QHS
     Route: 047
  6. LOTEPREDNOL [Concomitant]
     Active Substance: LOTEPREDNOL
     Indication: POSTOPERATIVE CARE
     Route: 065
  7. ADRENALINE [Concomitant]
     Active Substance: EPINEPHRINE
     Indication: PRODUCT USED FOR UNKNOWN INDICATION
     Route: 065
  8. POVIDONE-IODINE. [Concomitant]
     Active Substance: POVIDONE-IODINE
     Indication: PREOPERATIVE CARE
     Route: 065
  9. RINGERS SOLUTION [Concomitant]
     Active Substance: CALCIUM CHLORIDE\POTASSIUM CHLORIDE\SODIUM CHLORIDE
     Indication: PRODUCT USED FOR UNKNOWN INDICATION
     Route: 065
  10. DICLOFENAC SODIUM. [Concomitant]
     Active Substance: DICLOFENAC SODIUM
     Indication: PREOPERATIVE CARE
     Route: 065
  11. PRANOPROFEN [Concomitant]
     Active Substance: PRANOPROFEN
     Indication: PREOPERATIVE CARE
     Dosage: UNK UNK, QID
     Route: 047

REACTIONS (5)
  - Aqueous fibrin [Recovering/Resolving]
  - Uveitis [Recovering/Resolving]
  - Photophobia [Recovering/Resolving]
  - Conjunctival hyperaemia [Recovering/Resolving]
  - Eye pain [Recovering/Resolving]
